FAERS Safety Report 9152741 (Version 1)
Quarter: 2013Q1

REPORT INFORMATION
  Report Type: Spontaneous
  Country: SE (occurrence: SE)
  Receive Date: 20130308
  Receipt Date: 20130308
  Transmission Date: 20140127
  Serious: Yes (Death, Other)
  Sender: FDA-Public Use
  Company Number: SE-AMGEN-SWECT2013015308

PATIENT
  Age: 45 Year
  Sex: Female

DRUGS (3)
  1. ENBREL [Suspect]
     Indication: RHEUMATOID ARTHRITIS
     Dosage: UNK
     Dates: start: 19990406, end: 2000
  2. ENBREL [Suspect]
     Dosage: UNK
     Dates: end: 200208
  3. METHOTREXATE [Concomitant]
     Dosage: UNK

REACTIONS (7)
  - Extranodal marginal zone B-cell lymphoma (MALT type) [Fatal]
  - Skin fissures [Recovered/Resolved]
  - Arthralgia [Recovered/Resolved]
  - Pain [Recovered/Resolved]
  - Pneumonia [Fatal]
  - Pericarditis infective [Fatal]
  - Sepsis [Recovered/Resolved]
